FAERS Safety Report 7523922-1 (Version None)
Quarter: 2011Q2

REPORT INFORMATION
  Report Type: 
  Country: None (occurrence: None)
  Receive Date: 20110603
  Receipt Date: 20110524
  Transmission Date: 20111010
  Serious: No
  Sender: FDA-Public Use
  Company Number: US-RB-028018-11

PATIENT
  Sex: Male

DRUGS (7)
  1. WELLBUTRIN [Concomitant]
     Indication: DEPRESSION
     Route: 065
     Dates: end: 20110124
  2. TRAZODONE HCL [Concomitant]
     Indication: DEPRESSION
     Dosage: 50 MG IN AM, 50 MG IN PM, 100 MG AT BT
     Route: 065
     Dates: end: 20110124
  3. ABILIFY [Concomitant]
     Dosage: UNKNOWN DOSING INFORMATION
     Route: 065
     Dates: end: 20110124
  4. WELLBUTRIN [Concomitant]
     Indication: ANXIETY
     Route: 065
     Dates: end: 20110124
  5. SUBUTEX [Suspect]
     Indication: DRUG DEPENDENCE
     Route: 064
     Dates: start: 20100701, end: 20110124
  6. SUBOXONE [Suspect]
     Indication: DRUG DEPENDENCE
     Route: 064
     Dates: start: 20100601, end: 20100701
  7. ABILIFY [Concomitant]
     Indication: ANXIETY
     Dosage: UNKNOWN DOSING INFORMATION
     Route: 065
     Dates: end: 20110124

REACTIONS (2)
  - PREMATURE BABY [None]
  - DRUG EXPOSURE DURING PREGNANCY [None]
